FAERS Safety Report 8838126 (Version 2)
Quarter: 2014Q3

REPORT INFORMATION
  Report Type: Report from Study
  Country: US (occurrence: US)
  Receive Date: 20121012
  Receipt Date: 20140911
  Transmission Date: 20150326
  Serious: Yes (Hospitalization, Other)
  Sender: FDA-Public Use
  Company Number: US-ROCHE-CID000000002126242

PATIENT
  Age: 71 Year
  Sex: Female

DRUGS (1)
  1. RITUXAN [Suspect]
     Active Substance: RITUXIMAB
     Indication: CHRONIC LYMPHOCYTIC LEUKAEMIA
     Route: 065

REACTIONS (15)
  - Fatigue [Unknown]
  - Malaise [Unknown]
  - Abdominal pain [Unknown]
  - Disturbance in attention [Unknown]
  - Pain [Unknown]
  - Amnesia [Unknown]
  - Thrombocytopenia [Unknown]
  - Dysphonia [Unknown]
  - Dyspnoea [Unknown]
  - Asthenia [Unknown]
  - Anaemia [Unknown]
  - Gingival bleeding [Unknown]
  - Epistaxis [Unknown]
  - Pyrexia [Unknown]
  - Weight decreased [Unknown]

NARRATIVE: CASE EVENT DATE: 19980618
